FAERS Safety Report 5125752-7 (Version None)
Quarter: 2006Q4

REPORT INFORMATION
  Report Type: 
  Country: None (occurrence: None)
  Receive Date: 20061010
  Receipt Date: 20061010
  Transmission Date: 20070319
  Serious: Yes (Other)
  Sender: FDA-Public Use
  Company Number: None

PATIENT
  Sex: Female
  Weight: 63.05 kg

DRUGS (6)
  1. OCTREOTIDE 100 MCG/ ML 1ML AMP  NOVARTIS [Suspect]
     Indication: DIARRHOEA
     Dosage: 200 MCG ONCE SQ
     Route: 058
     Dates: start: 20060905, end: 20060905
  2. CETUXIMAB [Concomitant]
  3. OXALIPLATIN [Concomitant]
  4. CAPECITABINE [Concomitant]
  5. DIPHENHYDRAMINE HCL [Concomitant]
  6. PALENOSETRON [Concomitant]

REACTIONS (4)
  - INJECTION SITE ERYTHEMA [None]
  - INJECTION SITE URTICARIA [None]
  - NAUSEA [None]
  - VOMITING [None]
